FAERS Safety Report 14097665 (Version 1)
Quarter: 2017Q4

REPORT INFORMATION
  Report Type: Spontaneous
  Country: DE (occurrence: DE)
  Receive Date: 20171017
  Receipt Date: 20171017
  Transmission Date: 20180321
  Serious: Yes (Other)
  Sender: FDA-Public Use
  Company Number: DE-MERCK KGAA-2030298

PATIENT
  Sex: Female

DRUGS (1)
  1. NOVOTHYROX [Suspect]
     Active Substance: LEVOTHYROXINE SODIUM
     Indication: AUTOIMMUNE THYROIDITIS

REACTIONS (9)
  - Weight decreased [None]
  - Hyperthyroidism [None]
  - Palpitations [None]
  - Gastrointestinal disorder [Recovered/Resolved]
  - Agitation [None]
  - Restlessness [None]
  - Nervousness [None]
  - Rectal tenesmus [None]
  - Fatigue [None]
